FAERS Safety Report 5748273-7 (Version None)
Quarter: 2008Q2

REPORT INFORMATION
  Report Type: 
  Country: None (occurrence: None)
  Receive Date: 20080523
  Receipt Date: 20080512
  Transmission Date: 20081010
  Serious: Yes (Hospitalization)
  Sender: FDA-Public Use
  Company Number: MY-PFIZER INC-2007047623

PATIENT
  Sex: Male
  Weight: 55 kg

DRUGS (4)
  1. SU-011,248 [Suspect]
     Indication: METASTATIC RENAL CELL CARCINOMA
     Route: 048
     Dates: start: 20070511, end: 20070606
  2. VALPROIC ACID [Concomitant]
     Route: 048
  3. VITAMIN B [Concomitant]
     Route: 048
  4. ESOMEPRAZOLE [Concomitant]
     Route: 048

REACTIONS (1)
  - SCROTAL ABSCESS [None]
